FAERS Safety Report 13560484 (Version 2)
Quarter: 2017Q3

REPORT INFORMATION
  Report Type: Spontaneous
  Country: FR (occurrence: FR)
  Receive Date: 20170518
  Receipt Date: 20170821
  Transmission Date: 20171127
  Serious: Yes (Hospitalization, Other)
  Sender: FDA-Public Use
  Company Number: FR-009507513-1705FRA006556

PATIENT
  Age: 42 Year
  Sex: Male

DRUGS (4)
  1. INVANZ [Suspect]
     Active Substance: ERTAPENEM SODIUM
     Dosage: 1 G, QD
     Dates: start: 20170428
  2. TARGOCID [Suspect]
     Active Substance: TEICOPLANIN
     Dosage: 800 MG, QD
     Route: 058
     Dates: start: 20170315, end: 20170503
  3. INVANZ [Suspect]
     Active Substance: ERTAPENEM SODIUM
     Dosage: 2 G, QD
     Dates: start: 20170315, end: 20170428
  4. TARGOCID [Suspect]
     Active Substance: TEICOPLANIN
     Dosage: 400 MG, QD
     Route: 058
     Dates: start: 20170503

REACTIONS (1)
  - Neutropenia [Recovered/Resolved]

NARRATIVE: CASE EVENT DATE: 20170426
